FAERS Safety Report 5836493-2 (Version None)
Quarter: 2008Q3

REPORT INFORMATION
  Report Type: 
  Country: None (occurrence: None)
  Receive Date: 20080807
  Receipt Date: 20080731
  Transmission Date: 20090109
  Serious: Yes (Hospitalization)
  Sender: FDA-Public Use
  Company Number: BR-BAYER-200816717LA

PATIENT
  Age: 26 Year
  Sex: Female

DRUGS (2)
  1. BETAFERON [Suspect]
     Indication: MULTIPLE SCLEROSIS
     Route: 058
     Dates: start: 20060101
  2. RIVOTRIL [Concomitant]
     Indication: DEPRESSION
     Dosage: TOTAL DAILY DOSE: 2 MG  UNIT DOSE: 2 MG
     Route: 048
     Dates: start: 20040101

REACTIONS (5)
  - AGGRESSION [None]
  - ASTHENIA [None]
  - COORDINATION ABNORMAL [None]
  - DEPRESSION [None]
  - WEIGHT DECREASED [None]
